FAERS Safety Report 6717785-1 (Version None)
Quarter: 2010Q2

REPORT INFORMATION
  Report Type: 
  Country: None (occurrence: None)
  Receive Date: 20100507
  Receipt Date: 20100507
  Transmission Date: 20101027
  Serious: Yes (Other)
  Sender: FDA-Public Use
  Company Number: None

PATIENT
  Sex: Female
  Weight: 61.2356 kg

DRUGS (5)
  1. AMLODIPINE BESYLATE [Suspect]
     Indication: HYPERTENSION
     Dosage: 1 DAILY PO
     Route: 048
     Dates: start: 19980101, end: 20100506
  2. LEVOTHYROXINE SODIUM [Concomitant]
  3. ESTROPIPATE [Concomitant]
  4. BENADRYL [Concomitant]
  5. CLARITIN [Concomitant]

REACTIONS (9)
  - APHONIA [None]
  - CHEST PAIN [None]
  - CHOKING [None]
  - COUGH [None]
  - DYSPHONIA [None]
  - FOREIGN BODY [None]
  - INCREASED UPPER AIRWAY SECRETION [None]
  - OROPHARYNGEAL PAIN [None]
  - TABLET ISSUE [None]
